FAERS Safety Report 7557222-0 (Version None)
Quarter: 2011Q2

REPORT INFORMATION
  Report Type: 
  Country: None (occurrence: None)
  Receive Date: 20110620
  Receipt Date: 20110126
  Transmission Date: 20111010
  Serious: No
  Sender: FDA-Public Use
  Company Number: US-MYLANLABS-2011S1001362

PATIENT
  Age: 76 Year
  Sex: Female
  Weight: 43.09 kg

DRUGS (2)
  1. BUDESONIDE [Suspect]
     Indication: BRONCHIECTASIS
     Route: 055
  2. PERFOROMIST [Suspect]
     Indication: BRONCHIECTASIS
     Route: 055
     Dates: start: 20090101

REACTIONS (2)
  - DYSPHONIA [None]
  - DRY MOUTH [None]
